FAERS Safety Report 6691323-4 (Version None)
Quarter: 2010Q2

REPORT INFORMATION
  Report Type: 
  Country: None (occurrence: None)
  Receive Date: 20100416
  Receipt Date: 20100331
  Transmission Date: 20101027
  Serious: Yes (Other)
  Sender: FDA-Public Use
  Company Number: 1-22096636

PATIENT

DRUGS (4)
  1. ZONISAMIDE (STRENGTH + MANUFACTURER UNKNOWN) [Suspect]
     Indication: EPILEPSY
  2. TOPIRAMATE (STRENGTH + MANUFACTURER UNKNOWN) [Suspect]
     Indication: EPILEPSY
  3. OXCARBAZEPINE [Concomitant]
  4. PHENOBARBITAL [Concomitant]

REACTIONS (1)
  - PANCREATITIS ACUTE [None]
